FAERS Safety Report 5084361-9 (Version None)
Quarter: 2006Q3

REPORT INFORMATION
  Report Type: 
  Country: None (occurrence: None)
  Receive Date: 20060817
  Receipt Date: 20060817
  Transmission Date: 20061208
  Serious: Yes (Hospitalization)
  Sender: FDA-Public Use
  Company Number: None

PATIENT
  Age: 68 Year
  Sex: Male
  Weight: 51.9 kg

DRUGS (1)
  1. CETUXIMAB  BRISTOL-MYERS SQUIBB [Suspect]
     Indication: GASTRIC CANCER
     Dosage: 400MG/M2  1XWEEK  IV
     Route: 042
     Dates: start: 20060531, end: 20060801

REACTIONS (3)
  - INFECTION [None]
  - MENTAL STATUS CHANGES [None]
  - SEPSIS [None]
